FAERS Safety Report 8561948-X (Version None)
Quarter: 2012Q3

REPORT INFORMATION
  Report Type: 
  Country: None (occurrence: None)
  Receive Date: 20120802
  Receipt Date: 20080829
  Transmission Date: 20120928
  Serious: Yes (Other)
  Sender: FDA-Public Use
  Company Number: PHHY2010SG80842

PATIENT
  Sex: Male

DRUGS (3)
  1. IMATINIB MESYLATE [Suspect]
     Dosage: 400 MG DAILY
     Dates: start: 20091201, end: 20111008
  2. IMATINIB MESYLATE [Suspect]
     Indication: CHRONIC MYELOID LEUKAEMIA
     Dosage: 100 MG, UNK
     Dates: start: 20071116, end: 20111001
  3. SIMVASTATIN [Concomitant]
     Dosage: 5 MG, UNK

REACTIONS (10)
  - SWOLLEN TONGUE [None]
  - TONGUE DISCOLOURATION [None]
  - TONGUE DRY [None]
  - PAIN [None]
  - FATIGUE [None]
  - GLOSSITIS [None]
  - TONGUE ULCERATION [None]
  - STOMATITIS [None]
  - CHEILITIS [None]
  - TONGUE DISORDER [None]
